FAERS Safety Report 6158867-5 (Version None)
Quarter: 2009Q2

REPORT INFORMATION
  Report Type: 
  Country: None (occurrence: None)
  Receive Date: 20090415
  Receipt Date: 20090415
  Transmission Date: 20091009
  Serious: Yes (Other)
  Sender: FDA-Public Use
  Company Number: None

PATIENT
  Sex: Female
  Weight: 65.7716 kg

DRUGS (1)
  1. LEVAQUIN [Suspect]
     Indication: PNEUMONIA
     Dosage: 750MG  ONE TABLET A DAY PO
     Route: 048
     Dates: start: 20090401, end: 20090406

REACTIONS (6)
  - JOINT SWELLING [None]
  - JOINT WARMTH [None]
  - MOVEMENT DISORDER [None]
  - MUSCULAR WEAKNESS [None]
  - TENDERNESS [None]
  - TENDON PAIN [None]
